FAERS Safety Report 7906880-7 (Version None)
Quarter: 2011Q4

REPORT INFORMATION
  Report Type: 
  Country: None (occurrence: None)
  Receive Date: 20111110
  Receipt Date: 20111031
  Transmission Date: 20120403
  Serious: Yes (Other)
  Sender: FDA-Public Use
  Company Number: US-BAYER-2011-098086

PATIENT
  Age: 34 Year
  Sex: Male
  Weight: 104 kg

DRUGS (2)
  1. ALEVE (CAPLET) [Suspect]
     Indication: HEADACHE
     Dosage: 22 DF, ONCE, BOTTLE COUNT 100S
     Route: 048
     Dates: start: 20111008, end: 20111008
  2. ALCOHOL [Interacting]
     Dosage: UNK
     Dates: start: 20111008

REACTIONS (3)
  - NAUSEA [None]
  - HYPERSOMNIA [None]
  - HYPERHIDROSIS [None]
